FAERS Safety Report 5279370-0 (Version None)
Quarter: 2007Q1

REPORT INFORMATION
  Report Type: 
  Country: None (occurrence: None)
  Receive Date: 20061213
  Receipt Date: 20050328
  Transmission Date: 20070707
  Serious: No
  Sender: FDA-Public Use
  Company Number: 2005UW04814

PATIENT
  Age: 43 Year
  Sex: Female
  Weight: 83.46 kg

DRUGS (4)
  1. SEROQUEL [Suspect]
     Indication: BIPOLAR DISORDER
     Dosage: 100 MG PO
     Route: 048
     Dates: start: 20050307
  2. FLEXERIL [Suspect]
  3. IBUPROFEN [Suspect]
     Dosage: 800 MG
  4. PEPCID [Suspect]

REACTIONS (6)
  - CEREBROVASCULAR ACCIDENT [None]
  - DISORIENTATION [None]
  - FEELING DRUNK [None]
  - PANIC ATTACK [None]
  - SOMNOLENCE [None]
  - VISUAL DISTURBANCE [None]
